FAERS Safety Report 8312538-5 (Version None)
Quarter: 2012Q2

REPORT INFORMATION
  Report Type: 
  Country: None (occurrence: None)
  Receive Date: 20120425
  Receipt Date: 20120420
  Transmission Date: 20120825
  Serious: Yes (Hospitalization)
  Sender: FDA-Public Use
  Company Number: PHHY2012GR034288

PATIENT
  Age: 43 Year
  Sex: Male

DRUGS (2)
  1. RIBAVIRIN [Suspect]
     Indication: HEPATITIS C
     Dosage: FOR 32 WEEKS
  2. PEGINTERFERON ALFA-2A [Suspect]
     Indication: HEPATITIS C
     Dosage: FOR 32 WEEKS

REACTIONS (4)
  - PYREXIA [None]
  - ARTHRITIS [None]
  - GUTTATE PSORIASIS [None]
  - PUSTULAR PSORIASIS [None]
